FAERS Safety Report 7381240-9 (Version None)
Quarter: 2011Q1

REPORT INFORMATION
  Report Type: 
  Country: None (occurrence: None)
  Receive Date: 20110321
  Receipt Date: 20110223
  Transmission Date: 20110831
  Serious: Yes (Life-Threatening)
  Sender: FDA-Public Use
  Company Number: 54973 MSB # 2011-02059

PATIENT
  Age: 5 Month
  Sex: Female

DRUGS (1)
  1. HYLAND'S TEETHING TABLETS [Suspect]
     Indication: TEETHING

REACTIONS (4)
  - VISUAL IMPAIRMENT [None]
  - EYE MOVEMENT DISORDER [None]
  - DYSPNOEA [None]
  - CONVULSION [None]
